FAERS Safety Report 19444327 (Version 1)
Quarter: 2021Q2

REPORT INFORMATION
  Report Type: Spontaneous
  Country: JP (occurrence: JP)
  Receive Date: 20210621
  Receipt Date: 20210621
  Transmission Date: 20210717
  Serious: Yes (Death, Other)
  Sender: FDA-Public Use
  Company Number: JP-ASTRAZENECA-2021A539030

PATIENT
  Age: 50 Year
  Sex: Male

DRUGS (1)
  1. IMFINZI [Suspect]
     Active Substance: DURVALUMAB
     Indication: NON-SMALL CELL LUNG CANCER
     Route: 041
     Dates: start: 2020, end: 202103

REACTIONS (3)
  - Disseminated intravascular coagulation [Unknown]
  - Cerebral haemorrhage [Fatal]
  - Pancreatitis [Fatal]

NARRATIVE: CASE EVENT DATE: 202103
